FAERS Safety Report 12635210 (Version 2)
Quarter: 2016Q3

REPORT INFORMATION
  Report Type: Report from Study
  Country: BR (occurrence: BR)
  Receive Date: 20160809
  Receipt Date: 20160906
  Transmission Date: 20161109
  Serious: Yes (Other)
  Sender: FDA-Public Use
  Company Number: PHHY2016BR108754

PATIENT
  Sex: Female
  Weight: 64.2 kg

DRUGS (1)
  1. SANDOSTATIN LAR DEPOT [Suspect]
     Active Substance: OCTREOTIDE ACETATE
     Indication: NEUROENDOCRINE TUMOUR
     Dosage: 40 MG (2 DF OF 20 MG), QMO (EVERY28/30 DAYS)
     Route: 065
     Dates: start: 2009

REACTIONS (5)
  - Hernia [Unknown]
  - Emotional disorder [Unknown]
  - Weight increased [Unknown]
  - Diarrhoea [Unknown]
  - Anxiety [Unknown]
